FAERS Safety Report 7414742-7 (Version None)
Quarter: 2011Q1

REPORT INFORMATION
  Report Type: 
  Country: None (occurrence: None)
  Receive Date: 20110301
  Receipt Date: 20101014
  Transmission Date: 20110831
  Serious: Yes (Other)
  Sender: FDA-Public Use
  Company Number: US-JNJFOC-20070805112

PATIENT
  Age: 27 Year
  Sex: Male

DRUGS (6)
  1. EXTRA STRENGTH TYLENOL [Suspect]
     Indication: PAIN
     Dates: start: 20070821, end: 20070823
  2. ADVIL PM [Suspect]
     Indication: PAIN
     Dates: start: 20070821, end: 20070823
  3. MOTRIN IB [Suspect]
     Indication: PAIN
     Dates: start: 20070821, end: 20070823
  4. IBUPROFEN (ADVIL) [Suspect]
     Indication: PAIN
     Dates: start: 20070821, end: 20070823
  5. EXTRA STRENGTH TYLENOL [Suspect]
     Indication: PAIN
     Dates: start: 20070821, end: 20070823
  6. ASPIRIN [Suspect]
     Indication: PAIN
     Dates: start: 20070821, end: 20070823

REACTIONS (3)
  - INTENTIONAL OVERDOSE [None]
  - DIZZINESS [None]
  - HAEMATEMESIS [None]
